FAERS Safety Report 10669732 (Version 1)
Quarter: 2014Q4

REPORT INFORMATION
  Report Type: Spontaneous
  Country: GR (occurrence: GR)
  Receive Date: 20141222
  Receipt Date: 20141222
  Transmission Date: 20150529
  Serious: Yes (Hospitalization, Other)
  Sender: FDA-Public Use
  Company Number: GR-GLAXOSMITHKLINE-GR2014038643

PATIENT

DRUGS (4)
  1. DEPREVIX [Concomitant]
     Indication: DEPRESSION
     Route: 048
     Dates: start: 20141112, end: 20141112
  2. LEXOTANIL [Concomitant]
     Active Substance: BROMAZEPAM
     Indication: DEPRESSION
     Route: 048
     Dates: start: 2011, end: 2014
  3. LAMICTAL [Suspect]
     Active Substance: LAMOTRIGINE
     Indication: DEPRESSION
     Dosage: 1 DF, QD
     Route: 048
     Dates: start: 20141112, end: 20141112
  4. REMERON [Suspect]
     Active Substance: MIRTAZAPINE
     Indication: DEPRESSION
     Dosage: 0.5 DF, QD
     Route: 048
     Dates: start: 20141022, end: 20141112

REACTIONS (2)
  - Thrombocytopenia [Not Recovered/Not Resolved]
  - Haemolytic anaemia [Not Recovered/Not Resolved]
